FAERS Safety Report 6085488-5 (Version None)
Quarter: 2009Q1

REPORT INFORMATION
  Report Type: 
  Country: None (occurrence: None)
  Receive Date: 20090220
  Receipt Date: 20090216
  Transmission Date: 20090719
  Serious: Yes (Hospitalization)
  Sender: FDA-Public Use
  Company Number: AT-AMGEN-UK323730

PATIENT
  Sex: Male

DRUGS (5)
  1. PANITUMUMAB [Suspect]
     Indication: COLORECTAL CANCER
     Route: 042
     Dates: start: 20080613, end: 20081121
  2. IRINOTECAN HCL [Suspect]
     Route: 042
     Dates: start: 20080911, end: 20080911
  3. LEUCOVORIN CALCIUM [Suspect]
     Route: 042
     Dates: start: 20080911, end: 20080911
  4. FLUOROURACIL [Suspect]
     Route: 040
     Dates: start: 20080911, end: 20080911
  5. FLUOROURACIL [Suspect]
     Route: 042
     Dates: start: 20080911, end: 20080913

REACTIONS (1)
  - PYREXIA [None]
